FAERS Safety Report 9178273 (Version 1)
Quarter: 2012Q4

REPORT INFORMATION
  Report Type: 
  Country: US (occurrence: US)
  Receive Date: 20121029
  Receipt Date: 20121029
  Transmission Date: 20130627
  Serious: No
  Sender: FDA-Public Use
  Company Number: US-PFIZER INC-2012268495

PATIENT
  Age: 48 Year
  Sex: Female

DRUGS (7)
  1. SERTRALINE HCL [Suspect]
     Dosage: UNK
  2. CODEINE [Suspect]
     Dosage: UNK
  3. ERYTHROMYCIN [Suspect]
     Dosage: UNK
  4. TETRACYCLINE HCL [Suspect]
     Dosage: UNK
  5. SUMATRIPTAN SUCCINATE [Suspect]
     Dosage: UNK
  6. DIAZEPAM [Suspect]
     Dosage: UNK
  7. HYDROCODONE [Suspect]
     Dosage: UNK

REACTIONS (1)
  - Drug hypersensitivity [Unknown]
